FAERS Safety Report 25928241 (Version 1)
Quarter: 2025Q4

REPORT INFORMATION
  Report Type: Spontaneous
  Country: EU (occurrence: EU)
  Receive Date: 20251016
  Receipt Date: 20251016
  Transmission Date: 20260117
  Serious: Yes (Hospitalization)
  Sender: SUNOVION
  Company Number: EU-BIAL-BIAL-19982

PATIENT
  Age: 31 Year
  Sex: Female

DRUGS (1)
  1. ESLICARBAZEPINE ACETATE [Suspect]
     Active Substance: ESLICARBAZEPINE ACETATE
     Indication: Epilepsy
     Dosage: 1600 MILLIGRAM, BID
     Route: 048
     Dates: start: 20250507, end: 20250507

REACTIONS (3)
  - Somnolence [Recovering/Resolving]
  - Wrong drug [Recovering/Resolving]
  - Inappropriate schedule of product administration [Recovered/Resolved]

NARRATIVE: CASE EVENT DATE: 20250507
